FAERS Safety Report 6257859-5 (Version None)
Quarter: 2009Q3

REPORT INFORMATION
  Report Type: 
  Country: None (occurrence: None)
  Receive Date: 20090707
  Receipt Date: 20071220
  Transmission Date: 20100115
  Serious: Yes (Other)
  Sender: FDA-Public Use
  Company Number: US-ASTRAZENECA-2007UW21530

PATIENT
  Age: 19188 Day
  Sex: Female
  Weight: 99.3 kg

DRUGS (13)
  1. SEROQUEL [Suspect]
     Indication: ANXIETY
     Dosage: 100 MG TO 200 MG
     Route: 048
     Dates: start: 20020111
  2. SEROQUEL [Suspect]
     Indication: SCHIZOPHRENIA
     Dosage: 100 MG TO 200 MG
     Route: 048
     Dates: start: 20020111
  3. SEROQUEL [Suspect]
     Route: 048
     Dates: start: 20000201, end: 20050805
  4. SEROQUEL [Suspect]
     Route: 048
     Dates: start: 20000201, end: 20050805
  5. DIOVAN [Concomitant]
     Route: 048
     Dates: start: 20011214
  6. GLUCOTROL [Concomitant]
     Route: 048
     Dates: start: 20020320
  7. NEURONTIN [Concomitant]
     Route: 048
     Dates: start: 20020417
  8. PREMARIN [Concomitant]
     Dosage: 0.625 MG TO 1.25 MG
     Route: 048
     Dates: start: 20000713
  9. NEXIUM [Concomitant]
     Route: 048
     Dates: start: 20020320
  10. EFFEXOR [Concomitant]
     Route: 048
     Dates: start: 20000713
  11. LORAZEPAM [Concomitant]
     Dosage: STRENGTH 1 MG
     Route: 048
     Dates: start: 20000713
  12. REMERON [Concomitant]
     Route: 048
     Dates: start: 20020111
  13. MECLIZINE [Concomitant]
     Route: 048
     Dates: start: 20020111

REACTIONS (4)
  - DIABETES MELLITUS [None]
  - DIABETES MELLITUS INADEQUATE CONTROL [None]
  - HYPERGLYCAEMIA [None]
  - NEUROPATHY PERIPHERAL [None]
